FAERS Safety Report 9453552 (Version 1)
Quarter: 2013Q3

REPORT INFORMATION
  Report Type: Spontaneous
  Country: US (occurrence: None)
  Receive Date: 20130809
  Receipt Date: 20130809
  Transmission Date: 20140515
  Serious: No
  Sender: FDA-Public Use
  Company Number: None

PATIENT
  Age: 45 Year
  Sex: Male

DRUGS (1)
  1. HUMIRA [Suspect]
     Indication: PSORIASIS
     Dosage: 40MG  QOW  SQ
     Route: 058
     Dates: start: 20130621, end: 20130807

REACTIONS (4)
  - Neuralgia [None]
  - Myalgia [None]
  - Sensory disturbance [None]
  - Multiple sclerosis [None]
